FAERS Safety Report 14313903 (Version 1)
Quarter: 2017Q4

REPORT INFORMATION
  Report Type: Spontaneous
  Country: US (occurrence: US)
  Receive Date: 20171220
  Receipt Date: 20171220
  Transmission Date: 20180321
  Serious: No
  Sender: FDA-Public Use
  Company Number: None

PATIENT
  Sex: Female

DRUGS (1)
  1. CAPECITABINE. [Suspect]
     Active Substance: CAPECITABINE
     Indication: COLON CANCER
     Dosage: 500MG 2 BID X 14D ON, THEN 14D OFF PO
     Route: 048
     Dates: start: 20171005

REACTIONS (3)
  - Nausea [None]
  - Diarrhoea [None]
  - Vomiting [None]
